FAERS Safety Report 9220127 (Version 1)
Quarter: 2013Q2

REPORT INFORMATION
  Report Type: Spontaneous
  Country: FR (occurrence: FR)
  Receive Date: 20130409
  Receipt Date: 20130411
  Transmission Date: 20140414
  Serious: Yes (Hospitalization)
  Sender: FDA-Public Use
  Company Number: FR-ROCHE-1211717

PATIENT
  Age: 90 Year
  Sex: Female

DRUGS (8)
  1. ROCEPHINE [Suspect]
     Indication: PRODUCT USED FOR UNKNOWN INDICATION
     Route: 042
     Dates: start: 20130113, end: 20130123
  2. PREVISCAN [Suspect]
     Indication: ATRIAL FIBRILLATION
     Route: 048
     Dates: end: 20130123
  3. FLAGYL [Suspect]
     Indication: PRODUCT USED FOR UNKNOWN INDICATION
     Route: 048
     Dates: start: 20130113, end: 20130123
  4. CORDARONE [Concomitant]
  5. LERCAN [Concomitant]
  6. KALEORID [Concomitant]
  7. PARIET [Concomitant]
  8. VITAMIN K [Concomitant]
     Route: 042

REACTIONS (3)
  - Cerebellar haematoma [Recovered/Resolved]
  - Confusional state [Recovered/Resolved]
  - International normalised ratio increased [None]
